FAERS Safety Report 22033582 (Version 2)
Quarter: 2023Q4

REPORT INFORMATION
  Report Type: Report from Study
  Country: US (occurrence: US)
  Receive Date: 20230224
  Receipt Date: 20231009
  Transmission Date: 20240109
  Serious: Yes (Other)
  Sender: FDA-Public Use
  Company Number: US-MYLANLABS-2023M1019711

PATIENT
  Age: 47 Year
  Sex: Female

DRUGS (1)
  1. FINGOLIMOD [Suspect]
     Active Substance: FINGOLIMOD
     Indication: Product used for unknown indication
     Dosage: UNK
     Route: 065

REACTIONS (12)
  - Pneumonitis [Unknown]
  - Cardiovascular disorder [Unknown]
  - Chills [Unknown]
  - Hypertension [Unknown]
  - Back pain [Unknown]
  - Cough [Unknown]
  - Headache [Unknown]
  - Asthenia [Unknown]
  - Brain fog [Unknown]
  - Palpitations [Unknown]
  - Fatigue [Unknown]
  - Drug ineffective [Unknown]
